FAERS Safety Report 20124955 (Version 1)
Quarter: 2021Q4

REPORT INFORMATION
  Report Type: Spontaneous
  Country: US (occurrence: None)
  Receive Date: 20211128
  Receipt Date: 20211128
  Transmission Date: 20220303
  Serious: Yes (Disabling)
  Sender: FDA-Public Use
  Company Number: None

PATIENT
  Age: 38 Year
  Sex: Female
  Weight: 58.5 kg

DRUGS (7)
  1. TRIAMCINOLONE ACETONIDE [Suspect]
     Active Substance: TRIAMCINOLONE ACETONIDE
     Indication: Rash
     Dosage: OTHER FREQUENCY : 15 DAYS/MONTH;?
     Route: 061
     Dates: start: 20190901, end: 20210201
  2. TRIAMCINOLONE ACETONIDE [Suspect]
     Active Substance: TRIAMCINOLONE ACETONIDE
     Indication: Pruritus
  3. ZINC [Concomitant]
     Active Substance: ZINC
  4. FISH OIL [Concomitant]
  5. VITAMIN D [Concomitant]
     Active Substance: VITAMIN D NOS
  6. COLLAGEN [Concomitant]
     Active Substance: COLLAGEN
  7. HYALURONIC ACID [Concomitant]
     Active Substance: HYALURONIC ACID

REACTIONS (16)
  - Condition aggravated [None]
  - Hyperaesthesia [None]
  - Erythema [None]
  - Skin warm [None]
  - Chills [None]
  - Temperature regulation disorder [None]
  - Dry eye [None]
  - Insomnia [None]
  - Ear discomfort [None]
  - Peripheral swelling [None]
  - Joint swelling [None]
  - Skin hypertrophy [None]
  - Alopecia [None]
  - Alopecia [None]
  - Madarosis [None]
  - Carpal tunnel syndrome [None]

NARRATIVE: CASE EVENT DATE: 20210201
